FAERS Safety Report 7673481-8 (Version None)
Quarter: 2011Q3

REPORT INFORMATION
  Report Type: 
  Country: None (occurrence: None)
  Receive Date: 20110810
  Receipt Date: 20110726
  Transmission Date: 20111222
  Serious: Yes (Other)
  Sender: FDA-Public Use
  Company Number: US-RANBAXY-2011RR-46607

PATIENT
  Sex: Female

DRUGS (7)
  1. LEVAQUIN [Suspect]
     Dosage: 500 MG, QD
     Route: 048
     Dates: start: 20070212, end: 20070227
  2. LEVAQUIN [Suspect]
     Dosage: 500 MG, QD
     Route: 048
     Dates: start: 20080410, end: 20080423
  3. LEVAQUIN [Suspect]
     Dosage: 500 MG, QD
     Route: 048
     Dates: start: 20050402, end: 20050411
  4. LEVAQUIN [Suspect]
     Dosage: 750 MG, QD
     Route: 048
     Dates: start: 20080516, end: 20080520
  5. LEVAQUIN [Suspect]
     Indication: SINUSITIS
     Dosage: 500 MG, QD
     Route: 048
     Dates: start: 20050307, end: 20050316
  6. CIPROFLAXACIN [Suspect]
     Indication: ANTIBIOTIC THERAPY
     Route: 048
  7. LEVAQUIN [Suspect]
     Dosage: 500 MG, QD
     Route: 048
     Dates: start: 20050917, end: 20050926

REACTIONS (1)
  - ROTATOR CUFF SYNDROME [None]
